FAERS Safety Report 20313509 (Version 3)
Quarter: 2022Q1

REPORT INFORMATION
  Report Type: Spontaneous
  Country: US (occurrence: US)
  Receive Date: 20220109
  Receipt Date: 20220225
  Transmission Date: 20220423
  Serious: No
  Sender: FDA-Public Use
  Company Number: US-SANOFI-00916321

PATIENT
  Age: 37 Year
  Sex: Female

DRUGS (2)
  1. DUPIXENT [Suspect]
     Active Substance: DUPILUMAB
     Indication: Asthma
     Dosage: 600 MG, TOTAL
     Route: 058
     Dates: start: 20211215, end: 20211215
  2. DUPIXENT [Suspect]
     Active Substance: DUPILUMAB
     Dosage: 300 MG, QOW
     Route: 058
     Dates: end: 20220126

REACTIONS (7)
  - Eye irritation [Unknown]
  - Photophobia [Unknown]
  - Conjunctival papillae [Unknown]
  - Injection site swelling [Recovered/Resolved]
  - Conjunctivitis allergic [Unknown]
  - Injection site pruritus [Recovered/Resolved]
  - Product use issue [Unknown]

NARRATIVE: CASE EVENT DATE: 20211215
